FAERS Safety Report 5643609-X (Version None)
Quarter: 2008Q1

REPORT INFORMATION
  Report Type: 
  Country: None (occurrence: None)
  Receive Date: 20080131
  Receipt Date: 20071224
  Transmission Date: 20080703
  Serious: Yes (Hospitalization)
  Sender: FDA-Public Use
  Company Number: 163-21880-07121383

PATIENT
  Age: 84 Year
  Sex: Male

DRUGS (4)
  1. REVLIMID [Suspect]
     Indication: MULTIPLE MYELOMA
     Dosage: SEE IMAGE
     Route: 048
     Dates: start: 20070927, end: 20071219
  2. REVLIMID [Suspect]
     Indication: MULTIPLE MYELOMA
     Dosage: SEE IMAGE
     Route: 048
     Dates: start: 20071220
  3. REVLIMID [Suspect]
     Indication: MULTIPLE MYELOMA
  4. MIDODRINE [Concomitant]

REACTIONS (1)
  - BLOOD PRESSURE INCREASED [None]
